FAERS Safety Report 18427141 (Version 1)
Quarter: 2020Q4

REPORT INFORMATION
  Report Type: Spontaneous
  Country: US (occurrence: US)
  Receive Date: 20201026
  Receipt Date: 20201026
  Transmission Date: 20210114
  Serious: No
  Sender: FDA-Public Use
  Company Number: None

PATIENT
  Age: 65 Year
  Sex: Male
  Weight: 97.98 kg

DRUGS (3)
  1. REPATHA [Suspect]
     Active Substance: EVOLOCUMAB
     Indication: CORONARY ARTERY DISEASE
     Dosage: FREQUENCY: EVERY 14 DAYS
     Route: 058
     Dates: start: 20200805, end: 20201004
  2. REPATHA [Suspect]
     Active Substance: EVOLOCUMAB
     Indication: HYPERLIPIDAEMIA
     Dosage: FREQUENCY: EVERY 14 DAYS
     Route: 058
     Dates: start: 20200805, end: 20201004
  3. RPSUVASTATIN [Concomitant]

REACTIONS (3)
  - Arthralgia [None]
  - Myalgia [None]
  - Gait inability [None]

NARRATIVE: CASE EVENT DATE: 20201004
